FAERS Safety Report 8816718 (Version 1)
Quarter: 2012Q4

REPORT INFORMATION
  Report Type: 
  Country: US (occurrence: None)
  Receive Date: 20121001
  Receipt Date: 20121001
  Transmission Date: 20130627
  Serious: Yes (Other)
  Sender: FDA-Public Use
  Company Number: DEXT20120003

PATIENT
  Age: 52 Year
  Sex: Male

DRUGS (1)
  1. DEXTROAMPHETAMINE SULFATE [Suspect]
     Indication: NARCOLEPSY
     Dosage: 20 MG, 1 IN 1 D, ORAL
     Route: 048

REACTIONS (1)
  - Parkinson^s disease [None]
